FAERS Safety Report 9744108 (Version 1)
Quarter: 2013Q4

REPORT INFORMATION
  Report Type: Spontaneous
  Country: US (occurrence: US)
  Receive Date: 20131210
  Receipt Date: 20131210
  Transmission Date: 20140711
  Serious: No
  Sender: FDA-Public Use
  Company Number: US-BAYER-2013-150919

PATIENT
  Age: 56 Year
  Sex: Male

DRUGS (2)
  1. STAXYN (FDT/ODT) [Suspect]
     Dosage: ONE TO TWO TABLETS AS NEEDED
  2. STAXYN (FDT/ODT) [Suspect]
     Dosage: ONE TO TWO TABLETS AS NEEDED

REACTIONS (1)
  - Drug ineffective [Not Recovered/Not Resolved]
